FAERS Safety Report 8650512 (Version 2)
Quarter: 2012Q4

REPORT INFORMATION
  Report Type: 
  Country: FR (occurrence: FR)
  Receive Date: 20120705
  Receipt Date: 20121205
  Transmission Date: 20130627
  Serious: Yes (Other)
  Sender: FDA-Public Use
  Company Number: FR-UCBSA-055484

PATIENT
  Age: 29 Year
  Sex: Female

DRUGS (4)
  1. NEUPRO [Suspect]
     Indication: PARKINSON^S DISEASE
     Route: 062
     Dates: start: 201202, end: 20120413
  2. NEUPRO [Suspect]
     Indication: PARKINSON^S DISEASE
     Dosage: PROGRESSIVELY INCREASED DOSE
     Route: 062
     Dates: start: 201202, end: 201202
  3. NEUPRO [Suspect]
     Indication: PARKINSON^S DISEASE
     Route: 062
     Dates: start: 20120206, end: 201202
  4. AZILECT [Concomitant]
     Indication: PARKINSON^S DISEASE
     Route: 048
     Dates: start: 20120206

REACTIONS (4)
  - Aphonia [Recovered/Resolved]
  - Pruritus [Recovered/Resolved]
  - Application site oedema [Recovered/Resolved]
  - Application site swelling [Recovered/Resolved]
